FAERS Safety Report 7383951-8 (Version None)
Quarter: 2011Q1

REPORT INFORMATION
  Report Type: 
  Country: None (occurrence: None)
  Receive Date: 20110330
  Receipt Date: 20110309
  Transmission Date: 20110831
  Serious: No
  Sender: FDA-Public Use
  Company Number: US-MYLANLABS-2011S1002371

PATIENT
  Age: 52 Year
  Sex: Female
  Weight: 63.96 kg

DRUGS (4)
  1. TOPIRAMATE [Suspect]
     Indication: MOOD DISORDER DUE TO A GENERAL MEDICAL CONDITION
     Route: 048
     Dates: start: 20101210, end: 20101224
  2. XANAX [Concomitant]
     Indication: POST-TRAUMATIC STRESS DISORDER
     Dates: start: 20101101, end: 20101224
  3. TOPIRAMATE [Suspect]
     Indication: POST-TRAUMATIC STRESS DISORDER
     Route: 048
     Dates: start: 20101210, end: 20101224
  4. MELATONIN [Concomitant]

REACTIONS (3)
  - CONFUSIONAL STATE [None]
  - HYPOAESTHESIA [None]
  - PARAESTHESIA [None]
